FAERS Safety Report 10471203 (Version 1)
Quarter: 2014Q3

REPORT INFORMATION
  Report Type: Spontaneous
  Country: IN (occurrence: IN)
  Receive Date: 20140923
  Receipt Date: 20140923
  Transmission Date: 20150326
  Serious: Yes (Other)
  Sender: FDA-Public Use
  Company Number: IN-WATSON-2014-20299

PATIENT
  Sex: Male

DRUGS (3)
  1. HYDROXYUREA. [Suspect]
     Active Substance: HYDROXYUREA
     Indication: CHRONIC MYELOID LEUKAEMIA
     Dosage: 500 MG, BID
     Route: 064
  2. IMATINIB (UNKNOWN) [Suspect]
     Active Substance: IMATINIB
     Indication: CHRONIC LYMPHOCYTIC LEUKAEMIA
     Dosage: 400 MG, DAILY
     Route: 064
  3. ALLOPURINOL (UNKNOWN) [Suspect]
     Active Substance: ALLOPURINOL
     Indication: CHRONIC MYELOID LEUKAEMIA
     Dosage: 300 MG, DAILY
     Route: 064

REACTIONS (3)
  - Foetal exposure during pregnancy [Recovering/Resolving]
  - Low birth weight baby [Recovering/Resolving]
  - Apgar score low [Unknown]
